FAERS Safety Report 9981468 (Version 1)
Quarter: 2014Q1

REPORT INFORMATION
  Report Type: Spontaneous
  Country: US (occurrence: None)
  Receive Date: 20140306
  Receipt Date: 20140306
  Transmission Date: 20141002
  Serious: No
  Sender: FDA-Public Use
  Company Number: None

PATIENT
  Age: 62 Year
  Sex: Female
  Weight: 54.43 kg

DRUGS (2)
  1. PREVALITE [Suspect]
     Indication: DIARRHOEA
     Dosage: 1 PACKED BEFORE EACH MEAL BEFORE EACH MEAL TAKEN BY MOUTH
     Route: 048
     Dates: start: 20140222, end: 20140301
  2. PREVALITE [Suspect]
     Indication: GASTRIC MUCOSAL HYPERTROPHY
     Dosage: 1 PACKED BEFORE EACH MEAL BEFORE EACH MEAL TAKEN BY MOUTH
     Route: 048
     Dates: start: 20140222, end: 20140301

REACTIONS (3)
  - Product substitution issue [None]
  - Product quality issue [None]
  - Drug ineffective [None]
